FAERS Safety Report 5957174-0 (Version None)
Quarter: 2008Q4

REPORT INFORMATION
  Report Type: 
  Country: None (occurrence: None)
  Receive Date: 20081118
  Receipt Date: 20081107
  Transmission Date: 20090506
  Serious: Yes (Life-Threatening)
  Sender: FDA-Public Use
  Company Number: JP-ROCHE-592661

PATIENT
  Sex: Male
  Weight: 52 kg

DRUGS (11)
  1. ROCEPHIN [Suspect]
     Indication: POSTOPERATIVE WOUND INFECTION
     Route: 041
     Dates: start: 20080924, end: 20080926
  2. ROCEPHIN [Suspect]
     Route: 041
     Dates: start: 20081015, end: 20081015
  3. ITOROL [Concomitant]
     Route: 048
  4. HERBESSER R [Concomitant]
     Dosage: DRUG REPORTED; HERBESSER R (DILTIAZEM HYDROCHLORIDE) FORM; SUSTAINED RELEASE CAPSULE
     Route: 048
  5. GASTER D [Concomitant]
     Route: 048
  6. NORVASC [Concomitant]
     Dosage: DRUG REPORTED: NORVASC(AMLODIPINE BESILATE)
     Route: 048
  7. LIPIDIL [Concomitant]
     Route: 048
  8. EXCELASE [Concomitant]
     Dosage: DRUG REPORTED: EXCELASE(SANACTASE COMBINED DRUG)
     Route: 048
  9. URSO 250 [Concomitant]
     Dosage: DRUG REPORTED: URSO (URSODESOXYCHOLIC ACID)
     Route: 048
  10. LIPIODOL ULTRA-FLUID [Concomitant]
     Dosage: DRUG REPORTED: LIPODOL ULTRA FLUIDE (ETHYL ESTER OF IODINATED POPPY-SEED OIL FATTY ACID),
     Dates: start: 20080924, end: 20080924
  11. CISPLATIN [Concomitant]
     Dosage: DRUG REPORTED: IA-CALL (CISPLATIN)
     Route: 013
     Dates: start: 20080924, end: 20080924

REACTIONS (2)
  - ACUTE RESPIRATORY DISTRESS SYNDROME [None]
  - ANAPHYLACTIC SHOCK [None]
